FAERS Safety Report 18481303 (Version 4)
Quarter: 2021Q1

REPORT INFORMATION
  Report Type: Spontaneous
  Country: GB (occurrence: GB)
  Receive Date: 20201109
  Receipt Date: 20210120
  Transmission Date: 20210419
  Serious: Yes (Hospitalization, Other)
  Sender: FDA-Public Use
  Company Number: GB-NOVOPROD-744013

PATIENT
  Age: 59 Year
  Sex: Female
  Weight: 106 kg

DRUGS (5)
  1. AZATHIOPRINE. [Concomitant]
     Active Substance: AZATHIOPRINE
     Indication: MUSCULAR WEAKNESS
     Dosage: 100 MG
     Route: 048
     Dates: start: 2020
  2. LANSOPRAZOLE. [Concomitant]
     Active Substance: LANSOPRAZOLE
     Dosage: 50 MG
     Route: 048
     Dates: start: 2020
  3. PYRIDOSTIGMINE [Concomitant]
     Active Substance: PYRIDOSTIGMINE
     Indication: MUSCULAR WEAKNESS
     Dosage: 270 MG
     Route: 048
     Dates: start: 2016
  4. SERTRALINE [Concomitant]
     Active Substance: SERTRALINE HYDROCHLORIDE
     Indication: DEPRESSION
     Dosage: 100 MG
     Route: 048
     Dates: start: 2019
  5. LEVEMIR [Suspect]
     Active Substance: INSULIN DETEMIR
     Indication: TYPE 2 DIABETES MELLITUS
     Dosage: 26 IU, QD (8 UNITS AM AND 18 UNITS PM)
     Route: 058
     Dates: start: 20140716

REACTIONS (4)
  - Hospitalisation [Recovered/Resolved]
  - Device defective [Unknown]
  - Incorrect dose administered by device [Unknown]
  - Device malfunction [Unknown]
